FAERS Safety Report 15105349 (Version 2)
Quarter: 2018Q3

REPORT INFORMATION
  Report Type: Report from Study
  Country: US (occurrence: US)
  Receive Date: 20180704
  Receipt Date: 20180802
  Transmission Date: 20181010
  Serious: Yes (Other)
  Sender: FDA-Public Use
  Company Number: US-ROCHE-2146325

PATIENT
  Sex: Male

DRUGS (1)
  1. HEMLIBRA [Suspect]
     Active Substance: EMICIZUMAB-KXWH
     Indication: HAEMOPHILIA A WITHOUT INHIBITORS
     Dosage: DOSE AND UNIT: UNKNOWN; ONGOING: YES
     Route: 065

REACTIONS (5)
  - Meniscus injury [Unknown]
  - Joint injury [Unknown]
  - Intentional product use issue [Unknown]
  - Off label use [Unknown]
  - Injection site pain [Recovered/Resolved]
